FAERS Safety Report 18755310 (Version 5)
Quarter: 2021Q4

REPORT INFORMATION
  Report Type: Report from Study
  Country: US (occurrence: US)
  Receive Date: 20210119
  Receipt Date: 20211115
  Transmission Date: 20220303
  Serious: Yes (Other)
  Sender: FDA-Public Use
  Company Number: US-SHIRE-US202031010

PATIENT
  Sex: Female

DRUGS (2)
  1. HUMAN IMMUNOGLOBULIN G [Suspect]
     Active Substance: HUMAN IMMUNOGLOBULIN G
     Indication: Primary immunodeficiency syndrome
     Dosage: 20 GRAM
     Route: 065
  2. HUMAN IMMUNOGLOBULIN G [Suspect]
     Active Substance: HUMAN IMMUNOGLOBULIN G
     Indication: Immunodeficiency common variable
     Dosage: UNK, 1/WEEK
     Route: 058

REACTIONS (17)
  - Cardiac dysfunction [Unknown]
  - Cardiac failure [Not Recovered/Not Resolved]
  - Diabetes mellitus [Unknown]
  - Arthralgia [Not Recovered/Not Resolved]
  - Illness [Unknown]
  - Malaise [Not Recovered/Not Resolved]
  - Oral herpes [Unknown]
  - Sinusitis [Unknown]
  - Asthma [Unknown]
  - Somnolence [Unknown]
  - Bone pain [Unknown]
  - Neck pain [Unknown]
  - Back pain [Unknown]
  - Eye pain [Unknown]
  - Abdominal pain upper [Unknown]
  - Candida infection [Not Recovered/Not Resolved]
  - Nervous system disorder [Unknown]
